FAERS Safety Report 20731251 (Version 1)
Quarter: 2022Q2

REPORT INFORMATION
  Report Type: Report from Study
  Country: PR (occurrence: PR)
  Receive Date: 20220420
  Receipt Date: 20220420
  Transmission Date: 20220721
  Serious: Yes (Other)
  Sender: FDA-Public Use
  Company Number: PR-ABBVIE-22K-131-4364161-00

PATIENT
  Sex: Male
  Weight: 103.97 kg

DRUGS (2)
  1. VENCLEXTA [Suspect]
     Active Substance: VENETOCLAX
     Indication: Chronic lymphocytic leukaemia
     Route: 048
     Dates: start: 20220410, end: 202204
  2. VENCLEXTA [Suspect]
     Active Substance: VENETOCLAX
     Dosage: TITRATE UNTIL 200 MG IN WEEK 4
     Route: 048
     Dates: start: 202204

REACTIONS (1)
  - Haematospermia [Unknown]

NARRATIVE: CASE EVENT DATE: 20220416
